FAERS Safety Report 19884029 (Version 1)
Quarter: 2021Q3

REPORT INFORMATION
  Report Type: Spontaneous
  Country: US (occurrence: US)
  Receive Date: 20210923
  Receipt Date: 20210923
  Transmission Date: 20211014
  Serious: No
  Sender: FDA-Public Use
  Company Number: None

PATIENT
  Age: 90 Year
  Sex: Male
  Weight: 86 kg

DRUGS (1)
  1. ACYCLOVIR (ACYCLOVIR 200MG CAP) [Suspect]
     Active Substance: ACYCLOVIR
     Indication: RASH
     Route: 048
     Dates: start: 20210614, end: 20210625

REACTIONS (2)
  - Sedation [None]
  - Confusional state [None]

NARRATIVE: CASE EVENT DATE: 20210626
